FAERS Safety Report 23718287 (Version 1)
Quarter: 2024Q2

REPORT INFORMATION
  Report Type: Spontaneous
  Country: US (occurrence: None)
  Receive Date: 20240406
  Receipt Date: 20240406
  Transmission Date: 20240716
  Serious: Yes (Other)
  Sender: FDA-Public Use
  Company Number: None

PATIENT
  Age: 39 Year
  Sex: Female
  Weight: 72 kg

DRUGS (1)
  1. ZEPBOUND [Suspect]
     Active Substance: TIRZEPATIDE
     Indication: Obesity
     Dosage: 2 MG WEEKLY SUBCUTANEOUS
     Route: 058
     Dates: start: 20240222

REACTIONS (1)
  - Sensitive skin [None]

NARRATIVE: CASE EVENT DATE: 20240321
